FAERS Safety Report 17808730 (Version 3)
Quarter: 2021Q1

REPORT INFORMATION
  Report Type: Spontaneous
  Country: JP (occurrence: JP)
  Receive Date: 20200520
  Receipt Date: 20210319
  Transmission Date: 20210419
  Serious: Yes (Life-Threatening, Hospitalization, Other)
  Sender: FDA-Public Use
  Company Number: JP-OTSUKA-2020_012029

PATIENT
  Age: 2 Year
  Sex: Female
  Weight: 11 kg

DRUGS (3)
  1. BUSULFEX [Suspect]
     Active Substance: BUSULFAN
     Indication: AUTOLOGOUS HAEMATOPOIETIC STEM CELL TRANSPLANT
     Dosage: 48 MG, DAILY DOSE
     Route: 042
     Dates: start: 20181107, end: 20181110
  2. ALKERAN [Suspect]
     Active Substance: MELPHALAN
     Indication: AUTOLOGOUS HAEMATOPOIETIC STEM CELL TRANSPLANT
     Dosage: 35 MG, DAILY DOSE
     Route: 042
     Dates: start: 20181111, end: 20181112
  3. HEPARIN [Concomitant]
     Active Substance: HEPARIN SODIUM
     Indication: THROMBOTIC MICROANGIOPATHY
     Dosage: UNK
     Route: 065
     Dates: start: 20190214

REACTIONS (2)
  - Pulmonary arterial hypertension [Recovering/Resolving]
  - Thrombotic microangiopathy [Recovered/Resolved]

NARRATIVE: CASE EVENT DATE: 20190115
